FAERS Safety Report 4350972-9 (Version None)
Quarter: 2004Q2

REPORT INFORMATION
  Report Type: 
  Country: None (occurrence: None)
  Receive Date: 20040427
  Receipt Date: 20040412
  Transmission Date: 20050107
  Serious: Yes (Hospitalization)
  Sender: FDA-Public Use
  Company Number: US013018

PATIENT

DRUGS (1)
  1. PROVIGIL [Suspect]

REACTIONS (2)
  - LYMPH NODE PAIN [None]
  - WHITE BLOOD CELL COUNT INCREASED [None]
